FAERS Safety Report 9417083 (Version 2)
Quarter: 2014Q1

REPORT INFORMATION
  Report Type: Spontaneous
  Country: FR (occurrence: FR)
  Receive Date: 20130724
  Receipt Date: 20140321
  Transmission Date: 20141002
  Serious: Yes (Hospitalization, Other)
  Sender: FDA-Public Use
  Company Number: FR-PFIZER INC-2013211260

PATIENT
  Age: 63 Year
  Sex: Female

DRUGS (11)
  1. TAHOR [Suspect]
     Dosage: 10 MG, UNK
     Route: 048
  2. RAMIPRIL [Suspect]
     Dosage: UNK
     Route: 048
  3. REVLIMID [Suspect]
     Dosage: UNK
     Route: 048
     Dates: start: 201209, end: 201212
  4. COTAREG [Suspect]
     Dosage: UNK
     Route: 048
  5. LAMALINE (FRANCE) [Suspect]
     Dosage: UNK
     Route: 048
  6. PARIET [Suspect]
     Dosage: 20 MG, UNK
     Route: 048
  7. DUOPLAVIN [Suspect]
     Dosage: UNK
     Route: 048
  8. BISOPROLOL FUMARATE [Suspect]
     Dosage: UNK
     Route: 048
  9. BIPERIDYS FLASH [Concomitant]
     Dosage: UNK
  10. GAVISCON [Concomitant]
     Dosage: UNK
  11. SPASFON [Concomitant]
     Dosage: UNK

REACTIONS (2)
  - Pancreatitis [Recovered/Resolved]
  - Cardiac failure [Unknown]
